FAERS Safety Report 4492080-2 (Version None)
Quarter: 2004Q4

REPORT INFORMATION
  Report Type: 
  Country: None (occurrence: None)
  Receive Date: 20041029
  Receipt Date: 20041012
  Transmission Date: 20050328
  Serious: Yes (Death, Congenital Anomaly)
  Sender: FDA-Public Use
  Company Number: 2004-UK-00563UK

PATIENT
  Sex: Female

DRUGS (5)
  1. NEVIRAPINE                   (NEVIRAPINE) [Suspect]
     Indication: HIV INFECTION
     Dosage: 400 MG , IU
     Route: 015
  2. NEVIRAPINE                   (NEVIRAPINE) [Suspect]
     Indication: PROPHYLAXIS
     Dosage: 400 MG , IU
     Route: 015
  3. NELFINAVIR (NELFINAVIR) [Concomitant]
  4. DIDANOSINE [Concomitant]
  5. FOLIC ACID [Concomitant]

REACTIONS (13)
  - ARTERIOVENOUS MALFORMATION [None]
  - CARDIOVASCULAR DISORDER [None]
  - CONGENITAL ATRIAL SEPTAL DEFECT [None]
  - CONGENITAL PULMONARY VALVE ATRESIA [None]
  - CONGENITAL TRICUSPID VALVE ATRESIA [None]
  - CONGENITAL VENTRICULAR SEPTAL DEFECT [None]
  - DRUG EXPOSURE DURING PREGNANCY [None]
  - FOETAL DISORDER [None]
  - INTRA-UTERINE DEATH [None]
  - PULMONARY ARTERIOVENOUS FISTULA [None]
  - SITUS AMBIGUOUS [None]
  - VENTRICULAR HYPERTROPHY [None]
  - VENTRICULAR HYPOPLASIA [None]
